FAERS Safety Report 13115521 (Version 2)
Quarter: 2017Q1

REPORT INFORMATION
  Report Type: Report from Study
  Country: None (occurrence: US)
  Receive Date: 20170113
  Receipt Date: 20170116
  Transmission Date: 20170428
  Serious: Yes (Hospitalization)
  Sender: FDA-Public Use
  Company Number: US-ABBVIE-17K-163-1831578-00

PATIENT
  Sex: Male

DRUGS (2)
  1. HUMIRA [Suspect]
     Active Substance: ADALIMUMAB
     Indication: CROHN^S DISEASE
     Dosage: STANDARD TITRATION
     Route: 058
     Dates: start: 201502, end: 201512
  2. HUMIRA [Suspect]
     Active Substance: ADALIMUMAB
     Dosage: STANDARD TITRATION
     Route: 058
     Dates: start: 20160104

REACTIONS (7)
  - Diarrhoea [Unknown]
  - Abdominal pain [Unknown]
  - Abdominal hernia [Unknown]
  - Pulmonary embolism [Unknown]
  - Sepsis [Unknown]
  - Device related infection [Unknown]
  - Rectal haemorrhage [Unknown]

NARRATIVE: CASE EVENT DATE: 2016
